FAERS Safety Report 8926230 (Version 3)
Quarter: 2012Q4

REPORT INFORMATION
  Report Type: 
  Country: US (occurrence: US)
  Receive Date: 20121126
  Receipt Date: 20121231
  Transmission Date: 20130627
  Serious: Yes (Other)
  Sender: FDA-Public Use
  Company Number: US-AMGEN-USASP2012075026

PATIENT
  Age: 15 Year
  Sex: Female
  Weight: 64.5 kg

DRUGS (3)
  1. ENBREL [Suspect]
     Indication: ANKYLOSING SPONDYLITIS
     Dosage: 50 mg, qwk
     Route: 058
     Dates: start: 20101014
  2. METHOTREXATE [Concomitant]
     Indication: JUVENILE ARTHRITIS
     Dosage: 25 mg, qwk
     Route: 048
     Dates: start: 20100914
  3. NABUMETONE [Concomitant]
     Indication: JUVENILE ARTHRITIS
     Dosage: 1000 mg, qd
     Route: 048
     Dates: start: 20110605

REACTIONS (3)
  - Spondylolysis [Not Recovered/Not Resolved]
  - Spinal fracture [Not Recovered/Not Resolved]
  - Spondylolisthesis [Recovering/Resolving]
